FAERS Safety Report 12652004 (Version 2)
Quarter: 2016Q3

REPORT INFORMATION
  Report Type: Spontaneous
  Country: US (occurrence: US)
  Receive Date: 20160815
  Receipt Date: 20160817
  Transmission Date: 20161109
  Serious: Yes (Hospitalization)
  Sender: FDA-Public Use
  Company Number: US-PFIZER INC-2016385337

PATIENT
  Age: 58 Year
  Sex: Female
  Weight: 62.59 kg

DRUGS (1)
  1. XANAX [Suspect]
     Active Substance: ALPRAZOLAM
     Indication: PANIC ATTACK
     Dosage: 1 MG, 2X/DAY (ONE TABLET IN THE MORNING AND ONE TABLET IN THE EVENING)

REACTIONS (2)
  - Dizziness [Recovering/Resolving]
  - Cardiac murmur [Recovering/Resolving]

NARRATIVE: CASE EVENT DATE: 201606
